FAERS Safety Report 7676396-4 (Version None)
Quarter: 2011Q3

REPORT INFORMATION
  Report Type: 
  Country: None (occurrence: None)
  Receive Date: 20110805
  Receipt Date: 20110722
  Transmission Date: 20111222
  Serious: Yes (Hospitalization)
  Sender: FDA-Public Use
  Company Number: GER/UKI/11/0019114

PATIENT
  Age: 76 Year
  Sex: Female

DRUGS (2)
  1. CIPROFLOXACIN [Suspect]
     Indication: LOWER RESPIRATORY TRACT INFECTION
     Dosage: 800 MG, 1 IN 1 D
  2. PREDNISOLONE [Suspect]
     Indication: PRODUCT USED FOR UNKNOWN INDICATION
     Dosage: 5 MG

REACTIONS (10)
  - MOBILITY DECREASED [None]
  - TENDON PAIN [None]
  - LOCAL SWELLING [None]
  - DYSSTASIA [None]
  - GASTROENTERITIS VIRAL [None]
  - CONDITION AGGRAVATED [None]
  - TENDON RUPTURE [None]
  - BRONCHIECTASIS [None]
  - WEIGHT BEARING DIFFICULTY [None]
  - FALL [None]
